FAERS Safety Report 5097276-7 (Version None)
Quarter: 2006Q3

REPORT INFORMATION
  Report Type: 
  Country: None (occurrence: None)
  Receive Date: 20060906
  Receipt Date: 20060823
  Transmission Date: 20061208
  Serious: Yes (Other)
  Sender: FDA-Public Use
  Company Number: PHBS2006JP12914

PATIENT
  Age: 35 Year
  Sex: Male

DRUGS (13)
  1. CYCLOSPORINE [Suspect]
     Indication: CORD BLOOD TRANSPLANT THERAPY
     Dosage: 3 MG/KG/DAY
     Route: 065
  2. IRRADIATION [Concomitant]
     Dosage: 12 GY
  3. CYCLOPHOSPHAMIDE [Concomitant]
     Dosage: 120 MG/KG/DAY
  4. CYTARABINE [Concomitant]
     Dosage: 12 G/M2/DAY
  5. NEUPOGEN [Concomitant]
     Dosage: 5 UG/KG/DAY
     Route: 042
  6. METHOTREXATE [Suspect]
     Dosage: 15 MG/M2 ON DAY +1
  7. METHOTREXATE [Suspect]
     Dosage: 10 MG/M2 ON DAYS +3 AND +6
  8. ACYCLOVIR [Concomitant]
     Dosage: 1000 MG/DAY
     Route: 048
  9. ACYCLOVIR [Concomitant]
     Dosage: 10 MG/KG, BID
     Route: 042
  10. ACYCLOVIR [Concomitant]
     Dosage: 10 MG/KG, TID
     Route: 042
  11. PREDNISOLONE [Suspect]
     Dosage: 1 MG/KG/DAY
  12. PREDNISOLONE [Suspect]
     Dosage: 0.3 MG/KG/DAY
  13. PREDNISOLONE [Suspect]
     Dosage: 1 MG/KG/DAY

REACTIONS (17)
  - ACUTE GRAFT VERSUS HOST DISEASE IN INTESTINE [None]
  - ACUTE GRAFT VERSUS HOST DISEASE IN LIVER [None]
  - ACUTE GRAFT VERSUS HOST DISEASE IN SKIN [None]
  - CREATININE RENAL CLEARANCE DECREASED [None]
  - CSF TEST ABNORMAL [None]
  - DIPLOPIA [None]
  - ENCEPHALITIS POST VARICELLA [None]
  - FACIAL PALSY [None]
  - GRAFT VERSUS HOST DISEASE [None]
  - HEARING IMPAIRED [None]
  - HERPES ZOSTER [None]
  - NEUROTOXICITY [None]
  - NUCLEAR MAGNETIC RESONANCE IMAGING BRAIN ABNORMAL [None]
  - OBLITERATIVE BRONCHIOLITIS [None]
  - PNEUMOMEDIASTINUM [None]
  - POST HERPETIC NEURALGIA [None]
  - RENAL IMPAIRMENT [None]
